FAERS Safety Report 5259037-5 (Version None)
Quarter: 2007Q1

REPORT INFORMATION
  Report Type: 
  Country: None (occurrence: None)
  Receive Date: 20070305
  Receipt Date: 20070209
  Transmission Date: 20070707
  Serious: Yes (Other)
  Sender: FDA-Public Use
  Company Number: ENT 2007-0023

PATIENT
  Sex: Male

DRUGS (1)
  1. COMTAN [Suspect]

REACTIONS (1)
  - BLOOD PRESSURE DECREASED [None]
